FAERS Safety Report 9022335 (Version 1)
Quarter: 2013Q1

REPORT INFORMATION
  Report Type: Spontaneous
  Country: GB (occurrence: GB)
  Receive Date: 20130118
  Receipt Date: 20130118
  Transmission Date: 20140127
  Serious: Yes (Other)
  Sender: FDA-Public Use
  Company Number: GB-NOVOPROD-368441

PATIENT
  Sex: Female

DRUGS (1)
  1. VAGIFEM [Suspect]
     Indication: MENOPAUSAL SYMPTOMS
     Dosage: 25 ?G, UNK
     Route: 065
     Dates: start: 200511, end: 2007

REACTIONS (1)
  - Neoplasm malignant [Unknown]
